FAERS Safety Report 10102167 (Version 4)
Quarter: 2014Q2

REPORT INFORMATION
  Report Type: Spontaneous
  Country: US (occurrence: US)
  Receive Date: 20140424
  Receipt Date: 20140625
  Transmission Date: 20141212
  Serious: No
  Sender: FDA-Public Use
  Company Number: US-PFIZER INC-2014111786

PATIENT
  Age: 51 Year
  Sex: Female
  Weight: 65.76 kg

DRUGS (1)
  1. LEVOTHYROXINE SODIUM [Suspect]
     Indication: HYPOTHYROIDISM
     Dosage: 75 UG, UNK

REACTIONS (4)
  - Drug ineffective [Unknown]
  - Heart rate increased [Unknown]
  - Alopecia [Unknown]
  - Thyroid function test abnormal [Unknown]
